FAERS Safety Report 17712100 (Version 2)
Quarter: 2025Q3

REPORT INFORMATION
  Report Type: Spontaneous
  Country: EU (occurrence: EU)
  Receive Date: 20200427
  Receipt Date: 20250721
  Transmission Date: 20251020
  Serious: Yes (Congenital Anomaly)
  Sender: JOHNSON AND JOHNSON
  Company Number: EU-JNJFOC-20200422475

PATIENT

DRUGS (2)
  1. STELARA [Suspect]
     Active Substance: USTEKINUMAB
     Indication: Crohn^s disease
     Route: 064
  2. STELARA [Suspect]
     Active Substance: USTEKINUMAB
     Route: 064
     Dates: start: 2019

REACTIONS (3)
  - Trisomy 21 [Unknown]
  - Congenital heart valve disorder [Unknown]
  - Foetal exposure during pregnancy [Recovered/Resolved]

NARRATIVE: CASE EVENT DATE: 20190101
